FAERS Safety Report 8509316-0 (Version None)
Quarter: 2012Q3

REPORT INFORMATION
  Report Type: 
  Country: None (occurrence: None)
  Receive Date: 20120713
  Receipt Date: 20120711
  Transmission Date: 20120928
  Serious: Yes (Hospitalization)
  Sender: FDA-Public Use
  Company Number: US-ROCHE-1087037

PATIENT
  Sex: Male

DRUGS (3)
  1. PEGASYS [Suspect]
     Indication: HEPATITIS C
     Route: 058
     Dates: start: 20120420
  2. RIBAVIRIN [Suspect]
     Indication: HEPATITIS C
     Route: 048
     Dates: start: 20120420
  3. TELAPREVIR [Suspect]
     Indication: HEPATITIS C
     Dates: start: 20120420, end: 20120705

REACTIONS (5)
  - DEHYDRATION [None]
  - DIZZINESS [None]
  - ASTHENIA [None]
  - DYSPNOEA [None]
  - ILL-DEFINED DISORDER [None]
